FAERS Safety Report 6482756-X (Version None)
Quarter: 2009Q4

REPORT INFORMATION
  Report Type: 
  Country: None (occurrence: None)
  Receive Date: 20091204
  Receipt Date: 20091123
  Transmission Date: 20100525
  Serious: Yes (Life-Threatening, Other)
  Sender: FDA-Public Use
  Company Number: 1000010004

PATIENT
  Age: 49 Year
  Sex: Female

DRUGS (5)
  1. ESCITALOPRAM OXALATE [Suspect]
     Indication: DEPRESSION
     Dosage: 20 MG (20 MG,1 IN 1 D), ORAL
     Route: 048
     Dates: start: 20090615
  2. AMITRIPTYLINE [Concomitant]
  3. LEVOTHYROXINE SODIUM [Concomitant]
  4. DICLOFENAC [Concomitant]
  5. PARACETAMOL [Concomitant]

REACTIONS (13)
  - ABNORMAL DREAMS [None]
  - COUGH [None]
  - CRYING [None]
  - ECZEMA [None]
  - EMOTIONAL DISORDER [None]
  - FATIGUE [None]
  - FEAR [None]
  - HYPERPHAGIA [None]
  - INCORRECT DOSE ADMINISTERED [None]
  - NECK PAIN [None]
  - SELF ESTEEM DECREASED [None]
  - SELF-INJURIOUS IDEATION [None]
  - SUICIDAL IDEATION [None]
